FAERS Safety Report 13559948 (Version 1)
Quarter: 2017Q2

REPORT INFORMATION
  Report Type: Spontaneous
  Country: US (occurrence: US)
  Receive Date: 20170518
  Receipt Date: 20170518
  Transmission Date: 20170830
  Serious: No
  Sender: FDA-Public Use
  Company Number: US-BAYER-2017-094233

PATIENT
  Age: 69 Year
  Sex: Male

DRUGS (1)
  1. GADAVIST [Suspect]
     Active Substance: GADOBUTROL
     Dosage: UNK UNK, ONCE
     Route: 042

REACTIONS (3)
  - Pruritus [None]
  - Syncope [None]
  - Feeling hot [None]

NARRATIVE: CASE EVENT DATE: 20170516
